FAERS Safety Report 13626899 (Version 1)
Quarter: 2017Q2

REPORT INFORMATION
  Report Type: Spontaneous
  Country: US (occurrence: US)
  Receive Date: 20170607
  Receipt Date: 20170607
  Transmission Date: 20170830
  Serious: Yes (Other)
  Sender: FDA-Public Use
  Company Number: None

PATIENT
  Age: 55 Year
  Sex: Female
  Weight: 64.35 kg

DRUGS (21)
  1. FERAHEME [Suspect]
     Active Substance: FERUMOXYTOL NON-STOICHIOMETRIC MAGNETITE
     Indication: ANAEMIA
     Dosage: INTRAVENOUS (NOT OTHERWISE SPECIFIED)
     Route: 042
     Dates: start: 20170531, end: 20170531
  2. SYNTHROID [Concomitant]
     Active Substance: LEVOTHYROXINE SODIUM
  3. LISINOPRIL. [Concomitant]
     Active Substance: LISINOPRIL
  4. BIOTIN [Concomitant]
     Active Substance: BIOTIN
  5. BISACODYL. [Concomitant]
     Active Substance: BISACODYL
  6. VICODIN [Concomitant]
     Active Substance: ACETAMINOPHEN\HYDROCODONE BITARTRATE
  7. ZINC. [Concomitant]
     Active Substance: ZINC
  8. CALCIUM [Concomitant]
     Active Substance: CALCIUM
  9. HYDROCHLOROTHIAZIDE. [Concomitant]
     Active Substance: HYDROCHLOROTHIAZIDE
  10. OMEPRAZOLE. [Concomitant]
     Active Substance: OMEPRAZOLE
  11. NAPROXEN. [Concomitant]
     Active Substance: NAPROXEN
  12. RESTASIS [Concomitant]
     Active Substance: CYCLOSPORINE
  13. PATADAY [Concomitant]
     Active Substance: OLOPATADINE HYDROCHLORIDE
  14. METROGEL [Concomitant]
     Active Substance: METRONIDAZOLE
  15. TRAZODONE [Concomitant]
     Active Substance: TRAZODONE HYDROCHLORIDE
  16. MAGNESIUM [Concomitant]
     Active Substance: MAGNESIUM
  17. VAGIFEM [Concomitant]
     Active Substance: ESTRADIOL
  18. ADVIL [Concomitant]
     Active Substance: IBUPROFEN
  19. DEXEDRINE [Concomitant]
     Active Substance: DEXTROAMPHETAMINE SULFATE
  20. MULTI-VITAMIN [Concomitant]
     Active Substance: .ALPHA.-TOCOPHEROL ACETATE, DL-\ASCORBIC ACID\CYANOCOBALAMIN\FLUORIDE ION\FOLIC ACID\NIACIN\PYRIDOXINE\RIBOFLAVIN\THIAMINE\VITAMIN A\VITAMIN D
  21. VITAMIN D3 [Concomitant]
     Active Substance: CHOLECALCIFEROL

REACTIONS (14)
  - Asthenia [None]
  - Feeling abnormal [None]
  - Hypersomnia [None]
  - Fatigue [None]
  - Musculoskeletal pain [None]
  - Listless [None]
  - Diarrhoea [None]
  - Condition aggravated [None]
  - Tinnitus [None]
  - Dizziness postural [None]
  - Headache [None]
  - Loss of personal independence in daily activities [None]
  - Back pain [None]
  - Abdominal pain [None]

NARRATIVE: CASE EVENT DATE: 20170531
